FAERS Safety Report 9820687 (Version 1)
Quarter: 2013Q4

REPORT INFORMATION
  Report Type: Spontaneous
  Country: US (occurrence: None)
  Receive Date: 20131028
  Receipt Date: 20131028
  Transmission Date: 20140711
  Serious: No
  Sender: FDA-Public Use
  Company Number: 2013US001038

PATIENT
  Age: 29 Year
  Sex: Female
  Weight: 54.4 kg

DRUGS (7)
  1. ICLUSIG [Suspect]
     Indication: ACUTE LYMPHOCYTIC LEUKAEMIA
     Route: 048
     Dates: start: 20130107
  2. DEXAMETHASONE (DEXAMETHASONE) [Concomitant]
  3. POTASSIUM (POTASSIUM) [Concomitant]
  4. VALTREX (VALACICLOVIR HYDROCHLORIDE) [Concomitant]
  5. SENOKOT (SENNOSIDE A+B) [Concomitant]
  6. FOLIC ACID (FOLIC ACID) [Concomitant]
  7. XANAX (ALPRAZOLAM) [Concomitant]

REACTIONS (8)
  - Erythema [None]
  - Skin exfoliation [None]
  - Oedema peripheral [None]
  - Dry skin [None]
  - Abdominal pain upper [None]
  - Headache [None]
  - Arthralgia [None]
  - Constipation [None]
